FAERS Safety Report 4554352-2 (Version None)
Quarter: 2004Q4

REPORT INFORMATION
  Report Type: 
  Country: None (occurrence: None)
  Receive Date: 20041230
  Receipt Date: 20040720
  Transmission Date: 20050328
  Serious: Yes (Hospitalization)
  Sender: FDA-Public Use
  Company Number: 04-07-1044

PATIENT
  Age: 32 Year
  Sex: Male

DRUGS (2)
  1. CLOZAPINE [Suspect]
     Indication: BIPOLAR I DISORDER
     Dosage: 250MG HS ORAL
     Route: 048
     Dates: start: 20000601
  2. SEROQUEL [Concomitant]

REACTIONS (1)
  - LEUKOPENIA [None]
